FAERS Safety Report 17216287 (Version 4)
Quarter: 2020Q1

REPORT INFORMATION
  Report Type: Spontaneous
  Country: GB (occurrence: GB)
  Receive Date: 20191230
  Receipt Date: 20200302
  Transmission Date: 20200409
  Serious: Yes (Hospitalization, Other)
  Sender: FDA-Public Use
  Company Number: GB-MYLANLABS-2019M1130906

PATIENT
  Age: 53 Year
  Sex: Male

DRUGS (1)
  1. CLOZARIL [Suspect]
     Active Substance: CLOZAPINE
     Indication: SCHIZOPHRENIA
     Dosage: UNK
     Route: 048
     Dates: start: 20020630, end: 202002

REACTIONS (9)
  - Haemoglobin decreased [Not Recovered/Not Resolved]
  - Wrong technique in product usage process [Unknown]
  - Pancreatic carcinoma [Unknown]
  - Hepatic neoplasm [Unknown]
  - Eosinophil count decreased [Not Recovered/Not Resolved]
  - Hepatic cancer [Unknown]
  - Product dose omission [Unknown]
  - White blood cell count decreased [Recovered/Resolved]
  - Neutrophil count decreased [Recovered/Resolved]

NARRATIVE: CASE EVENT DATE: 20200122
